FAERS Safety Report 9280862 (Version 1)
Quarter: 2013Q2

REPORT INFORMATION
  Report Type: Spontaneous
  Country: DE (occurrence: FR)
  Receive Date: 20130509
  Receipt Date: 20130509
  Transmission Date: 20140414
  Serious: Yes (Other)
  Sender: FDA-Public Use
  Company Number: FR-FRI-1000045007

PATIENT
  Age: 80 Year
  Sex: Male

DRUGS (5)
  1. MEMANTINE [Suspect]
     Indication: DEMENTIA ALZHEIMER^S TYPE
     Dosage: 1 DF
     Route: 048
     Dates: end: 20130206
  2. CAPTEA [Suspect]
     Indication: HYPERTENSION
     Dosage: 1 DF
     Route: 048
     Dates: end: 20130206
  3. ACTONEL [Suspect]
     Indication: OSTEOPOROSIS
     Dosage: 0.1429 DF
     Route: 048
     Dates: end: 20130206
  4. CALCIDOSE VITAMINE D3 [Suspect]
     Indication: OSTEOPOROSIS
     Dosage: 1 DF
     Route: 048
     Dates: end: 20130206
  5. LEVOTHYROX [Concomitant]
     Indication: HYPOTHYROIDISM

REACTIONS (1)
  - Neutropenia [Recovered/Resolved]
